FAERS Safety Report 5508538-0 (Version None)
Quarter: 2007Q4

REPORT INFORMATION
  Report Type: 
  Country: None (occurrence: None)
  Receive Date: 20071031
  Receipt Date: 20070707
  Transmission Date: 20080405
  Serious: No
  Sender: FDA-Public Use
  Company Number: 2007PV033103

PATIENT
  Age: 45 Year
  Sex: Female

DRUGS (5)
  1. SYMLIN [Suspect]
     Indication: DIABETES MELLITUS
     Dosage: 60 MCG;TID;SC ; 48 MCG;TID;SC ; 18 MCG;TID;SC
     Route: 058
     Dates: start: 20070622, end: 20070601
  2. SYMLIN [Suspect]
     Indication: DIABETES MELLITUS
     Dosage: 60 MCG;TID;SC ; 48 MCG;TID;SC ; 18 MCG;TID;SC
     Route: 058
     Dates: start: 20070601, end: 20070705
  3. SYMLIN [Suspect]
     Indication: DIABETES MELLITUS
     Dosage: 60 MCG;TID;SC ; 48 MCG;TID;SC ; 18 MCG;TID;SC
     Route: 058
     Dates: start: 20070705
  4. LANTUS [Concomitant]
  5. HUMALOG [Concomitant]

REACTIONS (1)
  - BLOOD GLUCOSE DECREASED [None]
